FAERS Safety Report 16780974 (Version 1)
Quarter: 2019Q4

REPORT INFORMATION
  Report Type: Spontaneous
  Country: US (occurrence: US)
  Receive Date: 20190906
  Receipt Date: 20190906
  Transmission Date: 20200122
  Serious: Yes (Other)
  Sender: FDA-Public Use
  Company Number: None

PATIENT
  Age: 8 Year
  Sex: Male
  Weight: 51 kg

DRUGS (1)
  1. ONCASPAR [Suspect]
     Active Substance: PEGASPARGASE
     Indication: B-CELL TYPE ACUTE LEUKAEMIA
     Route: 041

REACTIONS (7)
  - Lip oedema [None]
  - Wheezing [None]
  - Lip swelling [None]
  - Infusion related reaction [None]
  - Lethargy [None]
  - Vomiting [None]
  - Urticaria [None]

NARRATIVE: CASE EVENT DATE: 20190905
